FAERS Safety Report 20746053 (Version 1)
Quarter: 2022Q2

REPORT INFORMATION
  Report Type: Report from Study
  Country: US (occurrence: US)
  Receive Date: 20220425
  Receipt Date: 20220425
  Transmission Date: 20220720
  Serious: No
  Sender: FDA-Public Use
  Company Number: US-MIRM-000302

PATIENT
  Sex: Male

DRUGS (4)
  1. LIVMARLI [Suspect]
     Active Substance: MARALIXIBAT CHLORIDE
     Indication: Product used for unknown indication
     Route: 048
     Dates: start: 202112
  2. LIVMARLI [Suspect]
     Active Substance: MARALIXIBAT CHLORIDE
     Indication: Product used for unknown indication
     Dosage: 0.45
     Route: 048
  3. 1328777 (GLOBALC3Sep19): Ursodio [Concomitant]
  4. 1328139 (GLOBALC3Sep19): Rifampin [Concomitant]

REACTIONS (3)
  - Pruritus [Recovered/Resolved]
  - Nasopharyngitis [Unknown]
  - Respiratory syncytial virus infection [Unknown]

NARRATIVE: CASE EVENT DATE: 20220101
